FAERS Safety Report 8231640-X (Version None)
Quarter: 2012Q1

REPORT INFORMATION
  Report Type: 
  Country: None (occurrence: None)
  Receive Date: 20120323
  Receipt Date: 20120313
  Transmission Date: 20120608
  Serious: Yes (Life-Threatening, Hospitalization)
  Sender: FDA-Public Use
  Company Number: JP-ELI_LILLY_AND_COMPANY-JP201203003703

PATIENT
  Age: 85 Year
  Sex: Female

DRUGS (4)
  1. MUCOSTA [Concomitant]
  2. KETOPROFEN [Concomitant]
  3. FORTEO [Suspect]
     Dosage: UNK
     Route: 058
     Dates: start: 20120201, end: 20120201
  4. OSTELUC [Concomitant]

REACTIONS (1)
  - CEREBRAL HAEMORRHAGE [None]
